FAERS Safety Report 9387508 (Version 1)
Quarter: 2013Q2

REPORT INFORMATION
  Report Type: Spontaneous
  Country: JP (occurrence: None)
  Receive Date: 20130627
  Receipt Date: 20130627
  Transmission Date: 20140414
  Serious: Yes (Other)
  Sender: FDA-Public Use
  Company Number: 2012033227

PATIENT
  Age: 74 Year
  Sex: Male

DRUGS (5)
  1. FIBROGAMMIN P [Suspect]
     Indication: GINGIVAL BLEEDING
     Dosage: 4 VIALS,  INTRAVENOUS (NOT OTHERWISE SPECIFIED)
     Route: 042
     Dates: start: 20100630, end: 20100630
  2. FIBROGAMMIN P [Suspect]
     Indication: HAEMOSTASIS
     Dosage: 4 VIALS,  INTRAVENOUS (NOT OTHERWISE SPECIFIED)
     Route: 042
     Dates: start: 20100630, end: 20100630
  3. FIBROGAMMIN P [Suspect]
     Dosage: 4 VIALS,  INTRAVENOUS (NOT OTHERWISE SPECIFIED)
     Route: 042
     Dates: start: 20100630, end: 20100630
  4. PARIET (RABEPRAOLE SODIUM) [Concomitant]
  5. GASLON (IRSOGLADINE MALEATE) [Concomitant]

REACTIONS (3)
  - Antibody test positive [None]
  - Factor XIII Inhibition [None]
  - Haemorrhage [None]
